FAERS Safety Report 6550304-1 (Version None)
Quarter: 2010Q1

REPORT INFORMATION
  Report Type: 
  Country: None (occurrence: None)
  Receive Date: 20100125
  Receipt Date: 20100113
  Transmission Date: 20100710
  Serious: Yes (Life-Threatening, Hospitalization)
  Sender: FDA-Public Use
  Company Number: GB-PFIZER INC-2008053411

PATIENT
  Age: 67 Year
  Sex: Male
  Weight: 76 kg

DRUGS (4)
  1. CHAMPIX [Suspect]
     Dosage: UNK
     Route: 048
     Dates: start: 20080108
  2. TIOTROPIUM BROMIDE MONOHYDRATE [Suspect]
     Dosage: UNK
     Route: 055
     Dates: start: 20080111
  3. SALBUTAMOL [Concomitant]
     Route: 055
  4. TIOTROPIUM BROMIDE [Concomitant]
     Route: 055

REACTIONS (1)
  - ACUTE MYELOID LEUKAEMIA [None]
